FAERS Safety Report 16363208 (Version 1)
Quarter: 2019Q2

REPORT INFORMATION
  Report Type: Spontaneous
  Country: FR (occurrence: FR)
  Receive Date: 20190528
  Receipt Date: 20190528
  Transmission Date: 20190711
  Serious: Yes (Other)
  Sender: FDA-Public Use
  Company Number: FR-MYLANLABS-2019M1048811

PATIENT
  Age: 43 Year
  Sex: Female
  Weight: 44 kg

DRUGS (4)
  1. HERCEPTIN [Suspect]
     Active Substance: TRASTUZUMAB
     Indication: BREAST CANCER
     Dosage: UNK (FORM:UNKNOWN)
     Route: 042
     Dates: start: 201211, end: 201312
  2. CARBOPLATIN. [Suspect]
     Active Substance: CARBOPLATIN
     Indication: BREAST CANCER
     Dosage: 1 DOSAGE FORM, CYCLE
     Route: 042
     Dates: start: 20131224, end: 20140409
  3. HERCEPTIN [Suspect]
     Active Substance: TRASTUZUMAB
     Dosage: 1 DOSAGE FORM, CYCLE
     Route: 042
     Dates: start: 20131224, end: 20140611
  4. TAXOTERE [Suspect]
     Active Substance: DOCETAXEL
     Indication: BREAST CANCER
     Dosage: 1 DOSAGE FORM, CYCLE
     Route: 042
     Dates: start: 20131224, end: 20140319

REACTIONS (2)
  - Arthralgia [Recovered/Resolved]
  - Myalgia [Recovered/Resolved]

NARRATIVE: CASE EVENT DATE: 201406
